FAERS Safety Report 8080067-2 (Version None)
Quarter: 2012Q1

REPORT INFORMATION
  Report Type: 
  Country: None (occurrence: None)
  Receive Date: 20120128
  Receipt Date: 20110819
  Transmission Date: 20120608
  Serious: No
  Sender: FDA-Public Use
  Company Number: US-ABBOTT-11P-163-0848864-00

PATIENT
  Sex: Female
  Weight: 89.438 kg

DRUGS (4)
  1. UNKNOWN MEDICATION [Concomitant]
     Indication: HYPERSENSITIVITY
  2. UNKNOWN MEDICATION [Concomitant]
     Indication: HORMONE REPLACEMENT THERAPY
  3. UNKNOWN MEDICATION [Concomitant]
     Indication: GASTROOESOPHAGEAL REFLUX DISEASE
  4. HUMIRA [Suspect]
     Indication: ANKYLOSING SPONDYLITIS
     Dates: start: 20101119

REACTIONS (5)
  - BLADDER PAIN [None]
  - URINARY TRACT INFECTION [None]
  - POLLAKIURIA [None]
  - GASTROENTERITIS VIRAL [None]
  - BACK PAIN [None]
